FAERS Safety Report 25136513 (Version 3)
Quarter: 2025Q2

REPORT INFORMATION
  Report Type: Report from Study
  Country: CA (occurrence: CA)
  Receive Date: 20250328
  Receipt Date: 20250505
  Transmission Date: 20250717
  Serious: Yes (Other)
  Sender: ABBVIE
  Company Number: CA-ABBVIE-6183894

PATIENT
  Age: 34 Year
  Sex: Female

DRUGS (1)
  1. SKYRIZI [Suspect]
     Active Substance: RISANKIZUMAB-RZAA
     Indication: Psoriasis
     Dosage: LAST DOSE- 27 FEB 2025
     Route: 058

REACTIONS (4)
  - Abortion induced [Unknown]
  - Fatigue [Unknown]
  - Gait disturbance [Unknown]
  - Maternal exposure during pregnancy [Unknown]
